FAERS Safety Report 17404322 (Version 1)
Quarter: 2020Q1

REPORT INFORMATION
  Report Type: Spontaneous
  Country: US (occurrence: US)
  Receive Date: 20200211
  Receipt Date: 20200211
  Transmission Date: 20200409
  Serious: No
  Sender: FDA-Public Use
  Company Number: US-ENDO PHARMACEUTICALS INC-2019-107421

PATIENT
  Age: 63 Year
  Sex: Female

DRUGS (2)
  1. METHYLPREDNISOLONE. [Suspect]
     Active Substance: METHYLPREDNISOLONE
     Indication: INFLAMMATION
     Dosage: 4 MG, 2 TABLETS BEFORE BREAKFAST, 1 TABLET AFTER LUNCH, 1 TABLET AFTER SUPPER AND 2 TABLETS AT BED
     Route: 065
     Dates: start: 20190817, end: 20190817
  2. METHYLPREDNISOLONE. [Suspect]
     Active Substance: METHYLPREDNISOLONE
     Dosage: 4 MG, AS DIRECTED ON THE PACKAGE
     Route: 065
     Dates: start: 20190818

REACTIONS (2)
  - Off label use [Not Recovered/Not Resolved]
  - Abdominal discomfort [Recovered/Resolved]

NARRATIVE: CASE EVENT DATE: 20190817
